FAERS Safety Report 11662198 (Version 1)
Quarter: 2015Q4

REPORT INFORMATION
  Report Type: Report from Study
  Country: CA (occurrence: CA)
  Receive Date: 20151026
  Receipt Date: 20151026
  Transmission Date: 20160304
  Serious: Yes (Hospitalization, Other)
  Sender: FDA-Public Use
  Company Number: PHHY2015CA129154

PATIENT
  Sex: Female

DRUGS (3)
  1. REVOLADE [Suspect]
     Active Substance: ELTROMBOPAG
     Dosage: 75 MG, QD
     Route: 065
  2. REVOLADE [Suspect]
     Active Substance: ELTROMBOPAG
     Indication: IMMUNE THROMBOCYTOPENIC PURPURA
     Dosage: 50 MG, QD
     Route: 065
  3. REVOLADE [Suspect]
     Active Substance: ELTROMBOPAG
     Dosage: CUTTING HER PILLS IN HALF AND TAKING ONLY A HALF DOSE
     Route: 065

REACTIONS (6)
  - Platelet count decreased [Unknown]
  - Internal haemorrhage [Unknown]
  - Terminal state [Unknown]
  - Wrong technique in product usage process [Unknown]
  - No therapeutic response [Unknown]
  - Underdose [Unknown]
